FAERS Safety Report 9824688 (Version 1)
Quarter: 2014Q1

REPORT INFORMATION
  Report Type: Report from Study
  Country: US (occurrence: US)
  Receive Date: 20140117
  Receipt Date: 20140117
  Transmission Date: 20141002
  Serious: Yes (Other)
  Sender: FDA-Public Use
  Company Number: US-ROCHE-1331063

PATIENT
  Sex: Female
  Weight: 10.2 kg

DRUGS (2)
  1. NUTROPIN AQ [Suspect]
     Indication: GROWTH HORMONE DEFICIENCY
     Route: 058
     Dates: end: 20131216
  2. NUTROPIN AQ [Suspect]
     Route: 058
     Dates: start: 20131216

REACTIONS (9)
  - Fatigue [Unknown]
  - Pyrexia [Unknown]
  - Diarrhoea [Unknown]
  - Dry skin [Unknown]
  - Weight increased [Unknown]
  - Dark circles under eyes [Unknown]
  - Secretion discharge [Unknown]
  - Ocular hyperaemia [Unknown]
  - Drug dose omission [Unknown]
